FAERS Safety Report 7014611-0 (Version None)
Quarter: 2010Q3

REPORT INFORMATION
  Report Type: 
  Country: None (occurrence: None)
  Receive Date: 20100924
  Receipt Date: 20100924
  Transmission Date: 20110219
  Serious: No
  Sender: FDA-Public Use
  Company Number: None

PATIENT
  Age: 58 Year
  Sex: Female
  Weight: 94.8018 kg

DRUGS (3)
  1. VENLAFAXINE [Suspect]
     Indication: ANXIETY
     Dosage: 75 MG DAILY PO
     Route: 048
     Dates: start: 20100920, end: 20100923
  2. VENLAFAXINE [Suspect]
     Indication: DEPRESSION
     Dosage: 75 MG DAILY PO
     Route: 048
     Dates: start: 20100920, end: 20100923
  3. VENLAFAXINE [Suspect]
     Indication: PANIC ATTACK
     Dosage: 75 MG DAILY PO
     Route: 048
     Dates: start: 20100920, end: 20100923

REACTIONS (5)
  - ANXIETY [None]
  - DEPRESSION [None]
  - HEADACHE [None]
  - PAIN [None]
  - PRODUCT SUBSTITUTION ISSUE [None]
